FAERS Safety Report 9288525 (Version 1)
Quarter: 2013Q2

REPORT INFORMATION
  Report Type: Spontaneous
  Country: US (occurrence: US)
  Receive Date: 20130514
  Receipt Date: 20130514
  Transmission Date: 20140414
  Serious: No
  Sender: FDA-Public Use
  Company Number: US-OPTIMER PHARMACEUTICALS, INC.-20110041

PATIENT
  Sex: 0

DRUGS (4)
  1. DIFICID [Suspect]
     Indication: CLOSTRIDIAL INFECTION
     Dosage: 200 MG, BID
     Route: 048
     Dates: start: 201109, end: 201109
  2. DIFICID [Suspect]
     Dosage: UNK
     Route: 065
     Dates: start: 20111021
  3. FOLBIC [Concomitant]
  4. TESTOSTERONE [Concomitant]

REACTIONS (3)
  - Clostridium difficile infection [Recovering/Resolving]
  - Disease recurrence [Recovering/Resolving]
  - Diarrhoea [Recovering/Resolving]
